FAERS Safety Report 8759313 (Version 1)
Quarter: 2012Q4

REPORT INFORMATION
  Report Type: 
  Country: DK (occurrence: DK)
  Receive Date: 20120829
  Receipt Date: 20120829
  Transmission Date: 20130627
  Serious: Yes (Hospitalization, Other)
  Sender: FDA-Public Use
  Company Number: DK-ROXANE LABORATORIES, INC.-2012-RO-01746RO

PATIENT
  Age: 96 Year
  Sex: Female

DRUGS (2)
  1. CALCIUM CARBONATE [Suspect]
  2. VITAMIN D [Suspect]

REACTIONS (4)
  - Hypercalcaemia [Unknown]
  - Blood parathyroid hormone increased [Unknown]
  - Fall [Unknown]
  - Medication error [Unknown]
